FAERS Safety Report 4981568-3 (Version None)
Quarter: 2006Q2

REPORT INFORMATION
  Report Type: 
  Country: None (occurrence: None)
  Receive Date: 20060425
  Receipt Date: 20060316
  Transmission Date: 20061013
  Serious: Yes (Death, Life-Threatening, Hospitalization, Disabling, Other)
  Sender: FDA-Public Use
  Company Number: FR-AMGEN-UK172781

PATIENT
  Sex: Male

DRUGS (1)
  1. DARBEPOETIN ALFA [Suspect]
     Indication: DIALYSIS
     Route: 042
     Dates: start: 20050524

REACTIONS (4)
  - CEREBRAL CIRCULATORY FAILURE [None]
  - CIRCULATORY COLLAPSE [None]
  - EPILEPSY [None]
  - RESPIRATORY FAILURE [None]
